FAERS Safety Report 13710304 (Version 12)
Quarter: 2020Q2

REPORT INFORMATION
  Report Type: Spontaneous
  Country: US (occurrence: US)
  Receive Date: 20170703
  Receipt Date: 20200506
  Transmission Date: 20200713
  Serious: Yes (Other)
  Sender: FDA-Public Use
  Company Number: US-ACTELION-A-NJ2017-156026

PATIENT
  Age: 58 Year
  Sex: Female
  Weight: 49.43 kg

DRUGS (7)
  1. REMODULIN [Suspect]
     Active Substance: TREPROSTINIL
     Indication: PRODUCT USED FOR UNKNOWN INDICATION
     Route: 065
  2. OPSUMIT [Suspect]
     Active Substance: MACITENTAN
     Indication: PULMONARY ARTERIAL HYPERTENSION
     Dosage: 10 MG, QD
     Route: 048
     Dates: start: 20150914
  3. ADEMPAS [Suspect]
     Active Substance: RIOCIGUAT
     Dosage: 1.5 MG, TID
     Route: 065
  4. ADCIRCA [Concomitant]
     Active Substance: TADALAFIL
  5. XARELTO [Concomitant]
     Active Substance: RIVAROXABAN
  6. OPSUMIT [Suspect]
     Active Substance: MACITENTAN
     Dosage: 10 MG, QD
     Route: 048
  7. ADEMPAS [Suspect]
     Active Substance: RIOCIGUAT
     Indication: PRODUCT USED FOR UNKNOWN INDICATION
     Dosage: 2 MG, TID
     Route: 065
     Dates: start: 20171006

REACTIONS (13)
  - Chemotherapy [Unknown]
  - Infusion site pain [Unknown]
  - Nausea [Unknown]
  - Coeliac disease [Unknown]
  - Infusion site erythema [Unknown]
  - Condition aggravated [Unknown]
  - Abdominal pain upper [Unknown]
  - Palpitations [Unknown]
  - Pain [Unknown]
  - Infusion site haemorrhage [Unknown]
  - Dizziness [Unknown]
  - Infusion site discolouration [Unknown]
  - Diarrhoea [Unknown]

NARRATIVE: CASE EVENT DATE: 20171006
